FAERS Safety Report 10178483 (Version 1)
Quarter: 2014Q2

REPORT INFORMATION
  Report Type: Spontaneous
  Country: US (occurrence: US)
  Receive Date: 20140519
  Receipt Date: 20140519
  Transmission Date: 20141212
  Serious: No
  Sender: FDA-Public Use
  Company Number: US-BAYER-2014-067194

PATIENT
  Sex: Female

DRUGS (2)
  1. BETASERON [Suspect]
     Indication: MULTIPLE SCLEROSIS
     Dosage: 0.25 MG, QD
     Route: 058
     Dates: start: 20110512
  2. AMPYRA [Suspect]
     Dosage: UNK

REACTIONS (2)
  - Insomnia [None]
  - Contusion [None]
